FAERS Safety Report 19171532 (Version 2)
Quarter: 2021Q2

REPORT INFORMATION
  Report Type: Spontaneous
  Country: NZ (occurrence: NZ)
  Receive Date: 20210423
  Receipt Date: 20210505
  Transmission Date: 20210717
  Serious: Yes (Other)
  Sender: FDA-Public Use
  Company Number: NZ-SA-2021SA128958

PATIENT
  Age: 75 Year
  Sex: Female

DRUGS (4)
  1. MYCOPHENOLATE MOFETIL. [Suspect]
     Active Substance: MYCOPHENOLATE MOFETIL
     Indication: BIRDSHOT CHORIORETINOPATHY
     Dosage: 1 G, BID
  2. MYCOPHENOLATE MOFETIL. [Suspect]
     Active Substance: MYCOPHENOLATE MOFETIL
     Dosage: GRADUALLY TAPERED TO 500 MG
  3. TRIAMCINOLONE ACETONIDE. [Suspect]
     Active Substance: TRIAMCINOLONE ACETONIDE
     Indication: BIRDSHOT CHORIORETINOPATHY
     Dosage: 40 MG SUBTENON
     Route: 031
  4. TRIAMCINOLONE ACETONIDE. [Suspect]
     Active Substance: TRIAMCINOLONE ACETONIDE
     Indication: CONDITION AGGRAVATED

REACTIONS (6)
  - Chorioretinitis [Recovering/Resolving]
  - Condition aggravated [Recovering/Resolving]
  - Infective uveitis [Recovering/Resolving]
  - Retinal detachment [Recovering/Resolving]
  - Eye infection toxoplasmal [Recovering/Resolving]
  - Vitreous haze [Recovering/Resolving]
